FAERS Safety Report 4688406-7 (Version None)
Quarter: 2005Q2

REPORT INFORMATION
  Report Type: 
  Country: None (occurrence: None)
  Receive Date: 20050610
  Receipt Date: 20050610
  Transmission Date: 20051028
  Serious: Yes (Other)
  Sender: FDA-Public Use
  Company Number: None

PATIENT
  Age: 50 Year
  Sex: Female
  Weight: 79.8331 kg

DRUGS (1)
  1. ENBREL [Suspect]
     Indication: ANKYLOSING SPONDYLITIS
     Dosage: 25 MG    3 DAYS   SUBCUTANEO
     Route: 058

REACTIONS (4)
  - BLOOD CHLORIDE DECREASED [None]
  - CARBON DIOXIDE INCREASED [None]
  - DEPRESSION [None]
  - HEPATIC FUNCTION ABNORMAL [None]
